FAERS Safety Report 23943473 (Version 1)
Quarter: 2024Q2

REPORT INFORMATION
  Report Type: Spontaneous
  Country: ES (occurrence: ES)
  Receive Date: 20240605
  Receipt Date: 20240605
  Transmission Date: 20240715
  Serious: Yes (Other)
  Sender: FDA-Public Use
  Company Number: ES-JNJFOC-20240541694

PATIENT
  Sex: Female

DRUGS (6)
  1. PALIPERIDONE PALMITATE [Suspect]
     Active Substance: PALIPERIDONE PALMITATE
     Indication: Schizophrenia
     Route: 030
  2. PALIPERIDONE PALMITATE [Suspect]
     Active Substance: PALIPERIDONE PALMITATE
  3. PALIPERIDONE PALMITATE [Suspect]
     Active Substance: PALIPERIDONE PALMITATE
  4. ENALAPRIL [Concomitant]
     Active Substance: ENALAPRIL
  5. RIVOTRIL [Concomitant]
     Active Substance: CLONAZEPAM
  6. QUETIAPINE [Concomitant]
     Active Substance: QUETIAPINE

REACTIONS (10)
  - Hallucination, tactile [Unknown]
  - Paralysis [Unknown]
  - Dizziness [Unknown]
  - Loss of personal independence in daily activities [Unknown]
  - Amnesia [Unknown]
  - Muscle spasms [Unknown]
  - Joint stiffness [Unknown]
  - Dyskinesia [Unknown]
  - Pain in extremity [Unknown]
  - Drug ineffective [Unknown]
